FAERS Safety Report 16866242 (Version 1)
Quarter: 2019Q3

REPORT INFORMATION
  Report Type: Spontaneous
  Country: US (occurrence: US)
  Receive Date: 20190930
  Receipt Date: 20190930
  Transmission Date: 20191005
  Serious: No
  Sender: FDA-Public Use
  Company Number: US-ALLERGAN-1912792US

PATIENT
  Sex: Male

DRUGS (1)
  1. VRAYLAR [Suspect]
     Active Substance: CARIPRAZINE
     Indication: SCHIZOPHRENIA

REACTIONS (5)
  - Muscle twitching [Unknown]
  - Off label use [Unknown]
  - Dyskinesia [Unknown]
  - Muscle rigidity [Unknown]
  - Tongue movement disturbance [Unknown]
